FAERS Safety Report 9266280 (Version 1)
Quarter: 2013Q2

REPORT INFORMATION
  Report Type: Spontaneous
  Country: US (occurrence: US)
  Receive Date: 20130502
  Receipt Date: 20130502
  Transmission Date: 20140414
  Serious: Yes (Hospitalization, Other)
  Sender: FDA-Public Use
  Company Number: US-AMGEN-USASP2013028354

PATIENT
  Age: 19 Year
  Sex: Female
  Weight: 67 kg

DRUGS (3)
  1. NPLATE [Suspect]
     Indication: THROMBOCYTOPENIA
     Dosage: UNK UNK, Q6WK
  2. MYCOPHENOLATE MOFETIL [Concomitant]
     Indication: SYSTEMIC LUPUS ERYTHEMATOSUS
     Dosage: 1000 MG, BID
  3. HYDROXYCHLOROQUINE [Concomitant]
     Dosage: 200 MG, QD

REACTIONS (4)
  - Renal failure acute [Recovering/Resolving]
  - Thrombotic microangiopathy [Recovering/Resolving]
  - Dyspnoea [Unknown]
  - Fluid overload [Unknown]
